FAERS Safety Report 5128698-3 (Version None)
Quarter: 2006Q4

REPORT INFORMATION
  Report Type: 
  Country: None (occurrence: None)
  Receive Date: 20061017
  Receipt Date: 20061005
  Transmission Date: 20070319
  Serious: Yes (Hospitalization, Other)
  Sender: FDA-Public Use
  Company Number: US-AVENTIS-200618420US

PATIENT
  Sex: Female

DRUGS (18)
  1. LASIX [Suspect]
     Indication: BLOOD PRESSURE INCREASED
     Dates: start: 19690101
  2. LASIX [Suspect]
     Indication: FLUID RETENTION
     Dates: start: 19690101
  3. ACTOS [Concomitant]
  4. LIPITOR [Concomitant]
  5. PLAVIX [Concomitant]
  6. AMARYL [Concomitant]
  7. INSULIN [Concomitant]
     Dosage: DOSE: UNK
  8. SPIROLACTONE [Concomitant]
     Indication: FLUID RETENTION
     Dates: start: 20010101
  9. SYNTHROID [Concomitant]
  10. THYROID PREPARATIONS [Concomitant]
     Dosage: DOSE: UNK
  11. IMDUR [Concomitant]
  12. CATAPRES                           /00171101/ [Concomitant]
  13. PREVACID [Concomitant]
  14. ZETIA [Concomitant]
  15. ASPIRIN [Concomitant]
  16. ADVAIR DISKUS 100/50 [Concomitant]
     Dosage: DOSE: UNK
  17. FOLIC ACID [Concomitant]
     Dosage: DOSE: UNK
  18. MIRALAX [Concomitant]
     Dosage: DOSE: UNK

REACTIONS (6)
  - CARDIAC OPERATION [None]
  - FLUID RETENTION [None]
  - OEDEMA PERIPHERAL [None]
  - ROAD TRAFFIC ACCIDENT [None]
  - STENT PLACEMENT [None]
  - SURGERY [None]
